FAERS Safety Report 10903971 (Version 1)
Quarter: 2015Q1

REPORT INFORMATION
  Report Type: Spontaneous
  Country: US (occurrence: US)
  Receive Date: 20150311
  Receipt Date: 20150311
  Transmission Date: 20150721
  Serious: Yes (Other)
  Sender: FDA-Public Use
  Company Number: US-AUROBINDO-AUR-APL-2015-02022

PATIENT
  Age: 66 Year
  Sex: Female

DRUGS (2)
  1. DONEPEZIL [Suspect]
     Active Substance: DONEPEZIL
     Indication: SARCOIDOSIS
     Dosage: UNK
     Route: 065
  2. RISPERIDONE. [Suspect]
     Active Substance: RISPERIDONE
     Indication: SARCOIDOSIS
     Dosage: UNK
     Route: 065

REACTIONS (1)
  - Parkinsonism [Unknown]
